FAERS Safety Report 5454707-8 (Version None)
Quarter: 2007Q3

REPORT INFORMATION
  Report Type: 
  Country: None (occurrence: None)
  Receive Date: 20070917
  Receipt Date: 20070228
  Transmission Date: 20080115
  Serious: Yes (Hospitalization, Other)
  Sender: FDA-Public Use
  Company Number: US-ASTRAZENECA-2006UW18889

PATIENT
  Sex: Female
  Weight: 113.6 kg

DRUGS (12)
  1. SEROQUEL [Suspect]
     Indication: SCHIZOPHRENIA
     Route: 048
     Dates: start: 20030101, end: 20040315
  2. SEROQUEL [Suspect]
     Indication: BIPOLAR DISORDER
     Route: 048
     Dates: start: 20030101, end: 20040315
  3. SEROQUEL [Suspect]
     Indication: DEPRESSION
     Route: 048
     Dates: start: 20030101, end: 20040315
  4. ABILIFY [Concomitant]
     Dates: start: 20040101, end: 20040101
  5. HALDOL [Concomitant]
     Dates: start: 20040101, end: 20040101
  6. STELAZINE [Concomitant]
     Dates: start: 20061101, end: 20060101
  7. EFFEXOR [Concomitant]
  8. BUSPIRONE [Concomitant]
  9. ALPRAZOLAM [Concomitant]
  10. OXCARBAZEPINE [Concomitant]
  11. ADIPEX [Concomitant]
     Dates: start: 19930101
  12. SLIM-FAST [Concomitant]
     Dates: start: 19930101

REACTIONS (2)
  - DIABETES MELLITUS [None]
  - TARDIVE DYSKINESIA [None]
